FAERS Safety Report 5562954-X (Version None)
Quarter: 2007Q4

REPORT INFORMATION
  Report Type: 
  Country: None (occurrence: None)
  Receive Date: 20071217
  Receipt Date: 20071210
  Transmission Date: 20080405
  Serious: Yes (Life-Threatening, Hospitalization, Other)
  Sender: FDA-Public Use
  Company Number: US-ROCHE-470426

PATIENT
  Age: 18 Year
  Sex: Male
  Weight: 102.1 kg

DRUGS (9)
  1. ACCUTANE [Suspect]
     Indication: ACNE
     Route: 065
     Dates: start: 19870601, end: 19870801
  2. ACCUTANE [Suspect]
     Dosage: 40 MG TWICE DAILY WITH A MAINTANENCE DOSE OF 40 MG EVERY OTHER DAY.
     Route: 065
     Dates: start: 19970301, end: 19970501
  3. ACCUTANE [Suspect]
     Route: 065
     Dates: start: 19990312
  4. ACCUTANE [Suspect]
     Dosage: FREQUENCY OF ADMINISTRATION WAS REPORTED AS 40 MG IN THE MORNING AND 80 MG AT NIGHT.
     Route: 065
     Dates: start: 19990413
  5. ACCUTANE [Suspect]
     Route: 065
     Dates: start: 19990614, end: 19990901
  6. DEPAKOTE [Concomitant]
     Dosage: GENERIC REPORTED AS DIALPROEX SODIUM.
  7. BACTRIM DS [Concomitant]
     Route: 048
     Dates: start: 19981101
  8. RETIN-A [Concomitant]
     Indication: ACNE
     Dosage: STRENGTH REPORTED AS 0.01.
     Route: 061
  9. CUTIVATE [Concomitant]
     Indication: ECZEMA
     Route: 061
     Dates: start: 19990413

REACTIONS (6)
  - DEPRESSION [None]
  - MAJOR DEPRESSION [None]
  - MASS [None]
  - MULTIPLE SCLEROSIS [None]
  - SUICIDAL IDEATION [None]
  - SUICIDE ATTEMPT [None]
